FAERS Safety Report 10213958 (Version 1)
Quarter: 2014Q2

REPORT INFORMATION
  Report Type: Spontaneous
  Country: KR (occurrence: KR)
  Receive Date: 20140603
  Receipt Date: 20140603
  Transmission Date: 20141212
  Serious: Yes (Other)
  Sender: FDA-Public Use
  Company Number: KR-JNJFOC-20140515418

PATIENT
  Age: 45 Year
  Sex: Female

DRUGS (1)
  1. DUROGESIC D-TRANS [Suspect]
     Indication: BACK PAIN
     Route: 062
     Dates: start: 201305

REACTIONS (2)
  - Respiratory depression [Not Recovered/Not Resolved]
  - Hallucination [Not Recovered/Not Resolved]
